FAERS Safety Report 7386432-0 (Version None)
Quarter: 2011Q1

REPORT INFORMATION
  Report Type: 
  Country: None (occurrence: None)
  Receive Date: 20110331
  Receipt Date: 20110328
  Transmission Date: 20110831
  Serious: Yes (Death, Hospitalization, Other)
  Sender: FDA-Public Use
  Company Number: PHEH2008US06171

PATIENT
  Sex: Male

DRUGS (40)
  1. ZOMETA [Suspect]
     Dosage: UNK, QMO
     Dates: end: 20081119
  2. FLOMAX [Concomitant]
  3. KLOR-CON [Concomitant]
  4. LORTAB [Concomitant]
  5. CLINDAMYCIN [Concomitant]
     Dosage: 300 MG, UNK
  6. DEXAMETHASONE [Concomitant]
  7. DECADRON [Concomitant]
  8. PREVACID [Concomitant]
  9. LASIX [Concomitant]
  10. METOPROLOL [Concomitant]
  11. ALPHAGAN [Concomitant]
  12. RISPERIDONE [Concomitant]
  13. NAPROXEN [Concomitant]
  14. NAVELBINE [Concomitant]
  15. RADIATION THERAPY [Concomitant]
     Dosage: UNK
     Dates: start: 20081115
  16. PERIDEX [Concomitant]
  17. CHLORHEXIDINE GLUCONATE [Concomitant]
  18. CELEBREX [Concomitant]
  19. COREG [Concomitant]
  20. DIGOXIN [Concomitant]
  21. PREDNISONE [Concomitant]
  22. LEXAPRO [Concomitant]
  23. ALBUTEROL [Concomitant]
  24. TAXOL [Concomitant]
  25. CHEMOTHERAPEUTICS NOS [Concomitant]
  26. SYNTHROID [Concomitant]
  27. KETOCONAZOLE [Concomitant]
  28. HYDROCODONE BITARTRATE [Concomitant]
  29. HYDROCORTISONE [Concomitant]
  30. POTASSIUM CHLORIDE [Concomitant]
  31. FUROSEMIDE [Concomitant]
  32. EMCYT [Concomitant]
  33. OXYCODONE [Concomitant]
  34. DILAUDID [Concomitant]
  35. CASODEX [Concomitant]
  36. PROTONIX [Concomitant]
  37. LUPRON [Concomitant]
  38. SINGULAIR [Concomitant]
  39. LISINOPRIL [Concomitant]
  40. FLUCONAZOLE [Concomitant]

REACTIONS (42)
  - BACK PAIN [None]
  - ANXIETY [None]
  - BARRETT'S OESOPHAGUS [None]
  - GASTRITIS [None]
  - METASTASES TO BONE [None]
  - DEFORMITY [None]
  - RENAL FAILURE [None]
  - MENISCUS LESION [None]
  - CARDIAC FAILURE CONGESTIVE [None]
  - ATRIAL FIBRILLATION [None]
  - METASTASES TO LUNG [None]
  - SWELLING [None]
  - GAIT DISTURBANCE [None]
  - FALL [None]
  - LACERATION [None]
  - ORTHOSIS USER [None]
  - HAEMORRHOIDS [None]
  - PROSTATIC SPECIFIC ANTIGEN INCREASED [None]
  - PAIN [None]
  - DYSPHAGIA [None]
  - DEATH [None]
  - CHRONIC OBSTRUCTIVE PULMONARY DISEASE [None]
  - DYSKINESIA [None]
  - DIVERTICULUM [None]
  - COLONIC POLYP [None]
  - SPINAL CORD COMPRESSION [None]
  - EMPHYSEMA [None]
  - EMOTIONAL DISTRESS [None]
  - DENTAL CARIES [None]
  - PHYSICAL DISABILITY [None]
  - MENINGEAL NEOPLASM [None]
  - HUMERUS FRACTURE [None]
  - ANAEMIA [None]
  - FAILURE TO THRIVE [None]
  - OSTEONECROSIS OF JAW [None]
  - INFECTION [None]
  - PURULENT DISCHARGE [None]
  - TOOTH FRACTURE [None]
  - BONE PAIN [None]
  - CHONDROMALACIA [None]
  - PATELLOFEMORAL PAIN SYNDROME [None]
  - HIATUS HERNIA [None]
